FAERS Safety Report 5902311-7 (Version None)
Quarter: 2008Q3

REPORT INFORMATION
  Report Type: 
  Country: None (occurrence: None)
  Receive Date: 20080929
  Receipt Date: 20080916
  Transmission Date: 20090109
  Serious: No
  Sender: FDA-Public Use
  Company Number: US-B.I. PHARMACEUTICALS,INC./RIDGEFIELD-2008-BP-12750BP

PATIENT
  Sex: Female

DRUGS (13)
  1. SPIRIVA [Suspect]
     Indication: CHRONIC OBSTRUCTIVE PULMONARY DISEASE
     Dosage: 18MCG
     Route: 055
     Dates: start: 20080802, end: 20080804
  2. SPIRIVA [Suspect]
     Indication: BRONCHIECTASIS
  3. NASONEX [Suspect]
     Indication: RHINITIS
     Route: 045
     Dates: start: 20080802, end: 20080805
  4. TOPROL-XL [Concomitant]
     Indication: SUPRAVENTRICULAR TACHYCARDIA
     Dosage: 75MG
     Route: 048
     Dates: start: 20020101
  5. SIMVASTATIN [Concomitant]
     Indication: HYPERCHOLESTEROLAEMIA
     Dosage: 5MG
     Route: 048
     Dates: start: 20040101
  6. ALPRAZOLAM [Concomitant]
     Indication: SLEEP DISORDER
  7. CO Q-10 [Concomitant]
     Dosage: 150MG
  8. OSCAL WITH D [Concomitant]
  9. POLICOSANOL [Concomitant]
     Dosage: 10MG
  10. MUCINEX [Concomitant]
     Dosage: 1200MG
  11. MAG OXIDE [Concomitant]
  12. GLUCOSAMINE [Concomitant]
  13. LOVAZA [Concomitant]
     Dosage: 1000MG

REACTIONS (8)
  - AGITATION [None]
  - CRYING [None]
  - FATIGUE [None]
  - FEELING ABNORMAL [None]
  - HEADACHE [None]
  - IRRITABILITY [None]
  - NERVOUSNESS [None]
  - TACHYCARDIA [None]
